FAERS Safety Report 10446360 (Version 4)
Quarter: 2015Q1

REPORT INFORMATION
  Report Type: Report from Study
  Country: GB (occurrence: GB)
  Receive Date: 20140911
  Receipt Date: 20150109
  Transmission Date: 20150720
  Serious: Yes (Death)
  Sender: FDA-Public Use
  Company Number: GB-BIOGENIDEC-2014BI092935

PATIENT
  Age: 66 Year
  Sex: Female

DRUGS (2)
  1. AVONEX [Suspect]
     Active Substance: INTERFERON BETA-1A
     Indication: MULTIPLE SCLEROSIS
     Route: 030
     Dates: start: 199807
  2. AVONEX [Suspect]
     Active Substance: INTERFERON BETA-1A
     Indication: MULTIPLE SCLEROSIS
     Route: 030
     Dates: start: 20070509, end: 20140902

REACTIONS (5)
  - Gastrointestinal disorder [Unknown]
  - Fall [Recovered/Resolved]
  - Asthenia [Unknown]
  - Ovarian cancer metastatic [Fatal]
  - Ataxia [Unknown]

NARRATIVE: CASE EVENT DATE: 2006
